FAERS Safety Report 4406397-0 (Version None)
Quarter: 2004Q3

REPORT INFORMATION
  Report Type: 
  Country: None (occurrence: None)
  Receive Date: 20040723
  Receipt Date: 20030716
  Transmission Date: 20050211
  Serious: No
  Sender: FDA-Public Use
  Company Number: US-GLAXOSMITHKLINE-A0416915A

PATIENT
  Age: 60 Year
  Sex: Female

DRUGS (10)
  1. AVANDIA [Suspect]
     Dosage: 4MG PER DAY
     Route: 048
  2. VERAPAMIL [Concomitant]
     Dosage: 240MG TWICE PER DAY
  3. HYDROCHLOROTHIAZIDE [Concomitant]
     Dosage: 12.5MG TWICE PER DAY
  4. EVISTA [Concomitant]
  5. VITAMIN B COMPLEX CAP [Concomitant]
  6. MULTIVITAMIN [Concomitant]
  7. MULTIVITAMIN [Concomitant]
  8. CELEBREX [Concomitant]
     Dosage: 100MG PER DAY
  9. MULTIVITAMIN [Concomitant]
  10. CELEBREX [Concomitant]
     Dosage: 100MG PER DAY

REACTIONS (4)
  - BLOOD PRESSURE DECREASED [None]
  - PARAESTHESIA [None]
  - PARAESTHESIA ORAL [None]
  - TREMOR [None]
